FAERS Safety Report 24982952 (Version 1)
Quarter: 2025Q1

REPORT INFORMATION
  Report Type: Spontaneous
  Country: US (occurrence: US)
  Receive Date: 20250218
  Receipt Date: 20250218
  Transmission Date: 20250408
  Serious: Yes (Other)
  Sender: NEUROCRINE BIOSCIENCES
  Company Number: US-NEUROCRINE BIOSCIENCES INC.-2025NBI01640

PATIENT
  Age: 64 Year
  Sex: Female

DRUGS (2)
  1. INGREZZA [Suspect]
     Active Substance: VALBENAZINE
     Indication: Tardive dyskinesia
     Route: 065
  2. INGREZZA [Suspect]
     Active Substance: VALBENAZINE
     Route: 065

REACTIONS (6)
  - Parkinson^s disease [Recovering/Resolving]
  - Psychotic disorder [Unknown]
  - Huntington^s disease [Recovering/Resolving]
  - Chorea [Recovering/Resolving]
  - Dyskinesia [Recovering/Resolving]
  - Nausea [Recovering/Resolving]
